FAERS Safety Report 7484124-0 (Version None)
Quarter: 2011Q2

REPORT INFORMATION
  Report Type: 
  Country: None (occurrence: None)
  Receive Date: 20110517
  Receipt Date: 20080820
  Transmission Date: 20111010
  Serious: Yes (Death, Hospitalization, Other)
  Sender: FDA-Public Use
  Company Number: US-BAYER-200839752NA

PATIENT
  Age: 76 Year
  Sex: Female
  Weight: 91 kg

DRUGS (11)
  1. TRASYLOL [Suspect]
     Dosage: 25 CC PER HOUR INFUSION
     Route: 042
     Dates: start: 20000426
  2. FRESH FROZEN PLASMA [Concomitant]
     Dosage: 2 U, UNK
     Route: 042
     Dates: start: 20000426
  3. HEPARIN [Concomitant]
     Dosage: UNK
     Route: 042
     Dates: start: 20000426
  4. RED BLOOD CELLS [Concomitant]
     Dosage: 5 U, UNK
     Route: 042
     Dates: start: 20000426
  5. OPTIRAY 300 [IODINE,IOVERSOL] [Concomitant]
     Indication: CATHETERISATION CARDIAC
     Dosage: UNK
     Dates: start: 20000425
  6. MELPHALAN HYDROCHLORIDE [Concomitant]
     Dosage: 5 MG, QD
     Route: 048
  7. COMBIVENT [Concomitant]
  8. TRASYLOL [Suspect]
     Indication: CORONARY ARTERY BYPASS
     Dosage: 100 ML, ONCE, LOADING DOSE
     Route: 042
     Dates: start: 20000426
  9. ACETYLSALICYLIC ACID SRT [Concomitant]
     Dosage: 325 MG, QD
     Route: 048
  10. DOPAMINE HCL [Concomitant]
     Dosage: UNK
     Route: 042
     Dates: start: 20000426
  11. PLATELETS [Concomitant]
     Dosage: 6 U, UNK
     Route: 042
     Dates: start: 20000426

REACTIONS (8)
  - ANHEDONIA [None]
  - CEREBRAL INFARCTION [None]
  - UNEVALUABLE EVENT [None]
  - RENAL FAILURE [None]
  - DEATH [None]
  - RENAL FAILURE ACUTE [None]
  - INJURY [None]
  - PAIN [None]
